FAERS Safety Report 9639976 (Version 1)
Quarter: 2013Q4

REPORT INFORMATION
  Report Type: Spontaneous
  Country: US (occurrence: None)
  Receive Date: 20131021
  Receipt Date: 20131021
  Transmission Date: 20140711
  Serious: No
  Sender: FDA-Public Use
  Company Number: None

PATIENT
  Age: 76 Year
  Sex: Female
  Weight: 61.24 kg

DRUGS (11)
  1. CALCITONIN [Suspect]
     Indication: OSTEOPOROSIS
     Dosage: 1 SPRAY IN EACH NOSTRIL EVERY DAY, ONCE DIALY, SPRAY INTO NOSTRIL
     Route: 045
     Dates: start: 20130812, end: 20130815
  2. LOSARTAN [Concomitant]
  3. TRAMADOL [Concomitant]
  4. SANDOZ-CALCITONIN-SALMON NASAL SPRAY NASAL SOLUTION [Concomitant]
  5. CALCIUM [Concomitant]
  6. MAGNESIUM [Concomitant]
  7. POTASSIUM [Concomitant]
  8. B-12 [Concomitant]
  9. D3 [Concomitant]
  10. FISH OIL [Concomitant]
  11. ASPIRIN [Concomitant]

REACTIONS (3)
  - Product odour abnormal [None]
  - Liquid product physical issue [None]
  - Product substitution issue [None]
